APPROVED DRUG PRODUCT: EPINASTINE HYDROCHLORIDE
Active Ingredient: EPINASTINE HYDROCHLORIDE
Strength: 0.05%
Dosage Form/Route: SOLUTION/DROPS;OPHTHALMIC
Application: A204055 | Product #001
Applicant: EPIC PHARMA LLC
Approved: May 5, 2017 | RLD: No | RS: No | Type: DISCN